FAERS Safety Report 7183134-0 (Version None)
Quarter: 2010Q4

REPORT INFORMATION
  Report Type: 
  Country: None (occurrence: None)
  Receive Date: 20101222
  Receipt Date: 20101214
  Transmission Date: 20110411
  Serious: Yes (Hospitalization)
  Sender: FDA-Public Use
  Company Number: US-TYCO HEALTHCARE/MALLINCKRODT-T201002061

PATIENT
  Sex: Female
  Weight: 64.399 kg

DRUGS (8)
  1. PENNSAID [Suspect]
     Indication: ARTHRITIS
     Dosage: 40 DROPS, QID
     Route: 061
     Dates: start: 20100907, end: 20100910
  2. VOLTAREN [Concomitant]
     Dosage: UNK
     Dates: end: 20100906
  3. METOPROLOL TARTRATE [Concomitant]
  4. PRAVASTATIN [Concomitant]
  5. TOPAMAX [Concomitant]
  6. IMITREX [Concomitant]
  7. ZOLOFT [Concomitant]
  8. APRAZOL [Concomitant]

REACTIONS (9)
  - ASTHENIA [None]
  - CELLULITIS [None]
  - DEHYDRATION [None]
  - DIZZINESS [None]
  - FALL [None]
  - GASTRODUODENITIS [None]
  - HYPOAESTHESIA FACIAL [None]
  - MOUTH INJURY [None]
  - STAPHYLOCOCCAL INFECTION [None]
